FAERS Safety Report 4853511-9 (Version None)
Quarter: 2005Q4

REPORT INFORMATION
  Report Type: 
  Country: None (occurrence: None)
  Receive Date: 20051214
  Receipt Date: 20051206
  Transmission Date: 20060501
  Serious: Yes (Hospitalization)
  Sender: FDA-Public Use
  Company Number: PHRM2005FR03226

PATIENT
  Age: 83 Year
  Sex: Female

DRUGS (6)
  1. TAREG [Suspect]
     Dosage: 1 DF, QD
     Route: 048
  2. FERO GRAD LP VITAMINE C 500 [Suspect]
     Dosage: 3 DF, QD
     Route: 048
  3. IDARAC [Suspect]
     Dosage: 1500 MG/DAY
     Route: 048
  4. ESOMEPRAZOLE (INEXIUM) [Suspect]
     Dosage: 1 DF, QD
     Route: 048
  5. FLUDEX [Suspect]
     Dosage: 2.5 MG/DAY
     Route: 048
  6. AMLOR [Suspect]
     Dosage: 5 MG, QD
     Route: 048

REACTIONS (2)
  - BLADDER CATHETERISATION [None]
  - URINARY RETENTION [None]
